FAERS Safety Report 16067354 (Version 2)
Quarter: 2020Q3

REPORT INFORMATION
  Report Type: Spontaneous
  Country: GB (occurrence: GB)
  Receive Date: 20190313
  Receipt Date: 20200909
  Transmission Date: 20201102
  Serious: Yes (Death, Congenital Anomaly)
  Sender: FDA-Public Use
  Company Number: GB-EISAI MEDICAL RESEARCH-EC-2019-053145

PATIENT

DRUGS (5)
  1. LAMOTRIGINE. [Suspect]
     Active Substance: LAMOTRIGINE
     Indication: GENERALISED TONIC-CLONIC SEIZURE
     Route: 064
  2. ADCAL?D3 [Concomitant]
     Active Substance: CALCIUM CARBONATE\CHOLECALCIFEROL
     Dosage: DOSE AND FREQUENCY NOT PROVIDED
  3. PERAMPANEL [Suspect]
     Active Substance: PERAMPANEL
     Indication: FOETAL EXPOSURE DURING PREGNANCY
     Route: 064
  4. KEPPRA [Suspect]
     Active Substance: LEVETIRACETAM
     Indication: FOETAL EXPOSURE DURING PREGNANCY
     Route: 064
  5. ACETYLSALICYLIC ACID [Concomitant]
     Active Substance: ASPIRIN
     Indication: GENERALISED TONIC-CLONIC SEIZURE
     Route: 064

REACTIONS (3)
  - Pulmonary hypoplasia [Fatal]
  - Congenital diaphragmatic hernia [Fatal]
  - Foetal exposure during pregnancy [Fatal]

NARRATIVE: CASE EVENT DATE: 2019
